FAERS Safety Report 5891351-2 (Version None)
Quarter: 2008Q3

REPORT INFORMATION
  Report Type: 
  Country: None (occurrence: None)
  Receive Date: 20080922
  Receipt Date: 20080910
  Transmission Date: 20090109
  Serious: No
  Sender: FDA-Public Use
  Company Number: US-BAYER-200833487NA

PATIENT
  Age: 33 Year
  Sex: Female
  Weight: 52 kg

DRUGS (2)
  1. YAZ [Suspect]
     Indication: CONTRACEPTION
     Route: 048
  2. CLARAVIS [Suspect]
     Indication: ACNE
     Route: 048
     Dates: start: 20080602, end: 20080810

REACTIONS (1)
  - BLOOD POTASSIUM INCREASED [None]
